FAERS Safety Report 7359505-6 (Version None)
Quarter: 2011Q1

REPORT INFORMATION
  Report Type: 
  Country: None (occurrence: None)
  Receive Date: 20110317
  Receipt Date: 20091214
  Transmission Date: 20110831
  Serious: No
  Sender: FDA-Public Use
  Company Number: US-PFIZER INC-2009310739

PATIENT
  Sex: Male

DRUGS (13)
  1. NORVASC [Suspect]
     Indication: HYPERTENSION
     Dosage: 10 MG, 1X/DAY
     Dates: start: 20090601
  2. ATENOLOL [Concomitant]
     Dosage: UNK
  3. ISOSORBIDE DINITRATE [Concomitant]
     Dosage: 40 MG, UNK
  4. PLAVIX [Concomitant]
     Dosage: 75 UNK, 1X/DAY
  5. GLUCOPHAGE [Concomitant]
     Dosage: FREQUENCY: 2X/DAILY,
  6. NASONEX [Concomitant]
     Dosage: 2 UNK, 1X/DAY
  7. OMEPRAZOLE [Concomitant]
     Dosage: 20 MG, UNK
  8. NITROGLYCERIN [Concomitant]
     Dosage: FREQUENCY: AS NEEDED,
  9. INSULIN GLARGINE [Concomitant]
     Dosage: 64 IU, UNK
  10. ZOCOR [Concomitant]
     Indication: BLOOD CHOLESTEROL INCREASED
     Dosage: 20 MG, UNK
  11. LOPID [Concomitant]
     Indication: BLOOD CHOLESTEROL INCREASED
     Dosage: 600 MG, UNK
  12. ACETYLSALICYLIC ACID [Concomitant]
     Dosage: 81 MG, UNK
  13. LISINOPRIL [Concomitant]
     Dosage: UNK

REACTIONS (2)
  - GLYCOSYLATED HAEMOGLOBIN INCREASED [None]
  - IMPAIRED FASTING GLUCOSE [None]
